FAERS Safety Report 18473209 (Version 1)
Quarter: 2020Q4

REPORT INFORMATION
  Report Type: Spontaneous
  Country: US (occurrence: US)
  Receive Date: 20201104
  Receipt Date: 20201104
  Transmission Date: 20210114
  Serious: Yes (Other)
  Sender: FDA-Public Use
  Company Number: None

PATIENT
  Age: 72 Year
  Sex: Male
  Weight: 62.6 kg

DRUGS (34)
  1. ACETAMINOPHEN. [Concomitant]
     Active Substance: ACETAMINOPHEN
  2. FENTANYL. [Concomitant]
     Active Substance: FENTANYL
  3. CEFEPIME [Concomitant]
     Active Substance: CEFEPIME HYDROCHLORIDE
  4. COLLAGENSE [Concomitant]
  5. COLYTE [Concomitant]
     Active Substance: POLYETHYLENE GLYCOL 3350\POTASSIUM CHLORIDE\SODIUM BICARBONATE\SODIUM CHLORIDE\SODIUM SULFATE
  6. FLUMAZENIL. [Concomitant]
     Active Substance: FLUMAZENIL
  7. CALCIUM GLUCONATE. [Concomitant]
     Active Substance: CALCIUM GLUCONATE
  8. ALPRAZOLAM. [Concomitant]
     Active Substance: ALPRAZOLAM
  9. CARVEDILOL. [Concomitant]
     Active Substance: CARVEDILOL
  10. CAFEZOLIN [Concomitant]
  11. CHIORHEXIDINE [Concomitant]
  12. DEXTROSE. [Concomitant]
     Active Substance: DEXTROSE
  13. NO DRUG NAME [Concomitant]
  14. CISATRACURLUM [Concomitant]
  15. DEXMEDETOMIDINE. [Concomitant]
     Active Substance: DEXMEDETOMIDINE
  16. DIPHENHYDRAMINE. [Concomitant]
     Active Substance: DIPHENHYDRAMINE
  17. FAMOTIDINE. [Concomitant]
     Active Substance: FAMOTIDINE
  18. HALOPERIDOL. [Concomitant]
     Active Substance: HALOPERIDOL
  19. AMLODIPINE [Concomitant]
     Active Substance: AMLODIPINE BESYLATE
  20. ARTIFICIAL TEAR (LACRI-LUBE) [Concomitant]
  21. DEXTROSE, UNSPECIFIED FORM. [Concomitant]
     Active Substance: DEXTROSE, UNSPECIFIED FORM
  22. CHLORHEXIDINE  GLUCONATE ORAL RINSE 0.12% [Suspect]
     Active Substance: CHLORHEXIDINE GLUCONATE
     Indication: PRODUCT USED FOR UNKNOWN INDICATION
     Route: 002
     Dates: start: 20201009, end: 20201028
  23. ALBUMIN [Concomitant]
     Active Substance: ALBUMIN HUMAN
  24. AMINO ACTD [Concomitant]
  25. BISACODYL. [Concomitant]
     Active Substance: BISACODYL
  26. CEFUROXIME AXETIL. [Concomitant]
     Active Substance: CEFUROXIME AXETIL
  27. D10W [Concomitant]
     Active Substance: DEXTROSE\WATER
  28. DEXAMETHASONE. [Concomitant]
     Active Substance: DEXAMETHASONE
  29. DOCUSATE SOD [Concomitant]
  30. EPHEDRINE. [Concomitant]
     Active Substance: EPHEDRINE
  31. ETOMIDATE. [Concomitant]
     Active Substance: ETOMIDATE
  32. CLONIDINE. [Concomitant]
     Active Substance: CLONIDINE
  33. D70W [Concomitant]
  34. GLUCOSE [Concomitant]
     Active Substance: DEXTROSE

REACTIONS (5)
  - Burkholderia test positive [None]
  - Suspected transmission of an infectious agent via product [None]
  - Upper gastrointestinal haemorrhage [None]
  - Recalled product [None]
  - Sputum culture positive [None]

NARRATIVE: CASE EVENT DATE: 20201026
